FAERS Safety Report 8562392-1 (Version None)
Quarter: 2012Q3

REPORT INFORMATION
  Report Type: 
  Country: None (occurrence: None)
  Receive Date: 20120802
  Receipt Date: 20120702
  Transmission Date: 20120928
  Serious: No
  Sender: FDA-Public Use
  Company Number: US-AMGEN-USASP2012040789

PATIENT
  Age: 57 Year
  Sex: Female

DRUGS (1)
  1. ENBREL [Suspect]
     Indication: RHEUMATOID ARTHRITIS
     Dosage: 50 MG, QWK
     Dates: start: 20120609

REACTIONS (6)
  - NECK PAIN [None]
  - MIGRAINE [None]
  - HYPOAESTHESIA [None]
  - PAIN IN EXTREMITY [None]
  - HEADACHE [None]
  - JOINT SWELLING [None]
